FAERS Safety Report 24216865 (Version 1)
Quarter: 2024Q3

REPORT INFORMATION
  Report Type: Spontaneous
  Country: CA (occurrence: CA)
  Receive Date: 20240816
  Receipt Date: 20240816
  Transmission Date: 20241016
  Serious: Yes (Other)
  Sender: TEVA
  Company Number: CA-TEVA-VS-3232145

PATIENT
  Age: 63 Year
  Sex: Female

DRUGS (6)
  1. METFORMIN [Suspect]
     Active Substance: METFORMIN HYDROCHLORIDE
     Indication: Type 2 diabetes mellitus
     Route: 048
  2. ROSUVASTATIN [Concomitant]
     Active Substance: ROSUVASTATIN\ROSUVASTATIN CALCIUM
     Indication: Product use in unapproved indication
     Route: 065
  3. DIVALPROEX SODIUM [Suspect]
     Active Substance: DIVALPROEX SODIUM
     Indication: Product use in unapproved indication
     Route: 048
  4. DIVALPROEX SODIUM [Suspect]
     Active Substance: DIVALPROEX SODIUM
     Indication: Product use in unapproved indication
     Route: 048
  5. RAMIPRIL [Concomitant]
     Active Substance: RAMIPRIL
     Indication: Product use in unapproved indication
     Route: 065
  6. CLOMIPRAMINE [Concomitant]
     Active Substance: CLOMIPRAMINE
     Indication: Product use in unapproved indication
     Route: 065

REACTIONS (4)
  - Haematochezia [Recovering/Resolving]
  - Gastroenteritis viral [Recovering/Resolving]
  - Hypophagia [Recovering/Resolving]
  - Diarrhoea [Recovering/Resolving]
